FAERS Safety Report 21860029 (Version 1)
Quarter: 2023Q1

REPORT INFORMATION
  Report Type: Spontaneous
  Country: US (occurrence: US)
  Receive Date: 20230113
  Receipt Date: 20230113
  Transmission Date: 20230418
  Serious: Yes (Death, Hospitalization, Other)
  Sender: FDA-Public Use
  Company Number: US-009507513-2301USA003356

PATIENT
  Sex: Male

DRUGS (1)
  1. TICE BCG [Suspect]
     Active Substance: BACILLUS CALMETTE-GUERIN SUBSTRAIN TICE LIVE ANTIGEN
     Indication: Bladder cancer
     Dosage: FOR 6 WEEKS

REACTIONS (4)
  - Death [Fatal]
  - Malignant neoplasm progression [Unknown]
  - Ill-defined disorder [Unknown]
  - Drug ineffective [Unknown]
